FAERS Safety Report 20316005 (Version 3)
Quarter: 2022Q1

REPORT INFORMATION
  Report Type: Spontaneous
  Country: IT (occurrence: IT)
  Receive Date: 20220110
  Receipt Date: 20220210
  Transmission Date: 20220423
  Serious: Yes (Other)
  Sender: FDA-Public Use
  Company Number: IT-MINISAL02-514948

PATIENT
  Age: 78 Year
  Sex: Female
  Weight: 74 kg

DRUGS (24)
  1. PIPERACILLIN AND TAZOBACTAM [Suspect]
     Active Substance: PIPERACILLIN SODIUM\TAZOBACTAM SODIUM
     Indication: Product used for unknown indication
     Dosage: 4.5 GRAM, ONCE A DAY
     Route: 042
     Dates: start: 20181030, end: 20181112
  2. FLUCONAZOLE [Suspect]
     Active Substance: FLUCONAZOLE
     Indication: Product used for unknown indication
     Dosage: 200 MILLIGRAM, ONCE A DAY
     Route: 042
  3. FLUCONAZOLE [Suspect]
     Active Substance: FLUCONAZOLE
     Dosage: UNK
     Route: 065
     Dates: start: 20210524, end: 20210906
  4. BACTRIM [Suspect]
     Active Substance: SULFAMETHOXAZOLE\TRIMETHOPRIM
     Indication: Product used for unknown indication
     Dosage: UNK
     Route: 065
     Dates: start: 20210524, end: 20210906
  5. BENDAMUSTINE [Suspect]
     Active Substance: BENDAMUSTINE
     Indication: Product used for unknown indication
     Dosage: 121 MILLIGRAM,121 MG, (ADMINISTERED DAYS 1,2 EVERY CYCLE)
     Route: 042
     Dates: start: 20210810
  6. BENDAMUSTINE [Suspect]
     Active Substance: BENDAMUSTINE
     Dosage: 121 MILLIGRAM,121 MG, (ADMINISTERED DAYS 1,2 EVERY CYCLE)
     Route: 042
     Dates: start: 20210525, end: 20210810
  7. BENDAMUSTINE [Suspect]
     Active Substance: BENDAMUSTINE
     Dosage: 121 MILLIGRAM(121 MG, (ADMINISTERED DAYS 1,2 EVERY CYCLE)
     Route: 042
     Dates: start: 20211119
  8. CLINDAMYCIN [Suspect]
     Active Substance: CLINDAMYCIN
     Indication: Product used for unknown indication
     Dosage: 600 MILLIGRAM, TWO TIMES A DAY
     Route: 042
     Dates: start: 20181103, end: 20181112
  9. COPANLISIB [Suspect]
     Active Substance: COPANLISIB
     Indication: Product used for unknown indication
     Dosage: 45 MILLIGRAM,45 MG, (ADMINISTERED ON DAYS 1, 8 AND 15 OF EVERY CYCLE)
     Route: 042
     Dates: start: 20210524, end: 20210823
  10. COPANLISIB [Suspect]
     Active Substance: COPANLISIB
     Dosage: 45 MILLIGRAM,45 MG, (ADMINISTERED ON DAYS 1, 8 AND 15 OF EVERY CYCLE)
     Route: 042
     Dates: start: 20210523, end: 20210823
  11. COPANLISIB [Suspect]
     Active Substance: COPANLISIB
     Dosage: 30 MILLIGRAM((ADMINISTERED ON DAYS 1, 8 AND 15 OF EVERY CYCLE))
     Route: 042
     Dates: start: 20211202
  12. COPANLISIB [Suspect]
     Active Substance: COPANLISIB
     Dosage: 30 MILLIGRAM, CYCLICAL
     Route: 065
     Dates: start: 20210524, end: 20211027
  13. FONDAPARINUX [Suspect]
     Active Substance: FONDAPARINUX
     Indication: Product used for unknown indication
     Dosage: UNK
     Route: 065
     Dates: start: 20210820, end: 20210913
  14. RITUXIMAB [Suspect]
     Active Substance: RITUXIMAB
     Indication: Product used for unknown indication
     Dosage: 649 MILLIGRAM
     Route: 042
     Dates: start: 20210525
  15. RITUXIMAB [Suspect]
     Active Substance: RITUXIMAB
     Dosage: 649 MILLIGRAM
     Route: 042
     Dates: start: 20210809
  16. RITUXIMAB [Suspect]
     Active Substance: RITUXIMAB
     Dosage: 649 MILLIGRAM, CYCLICAL (649 MG (ON DAY 1 EVERY CYCLE)
     Route: 042
     Dates: start: 20211118
  17. RITUXIMAB [Suspect]
     Active Substance: RITUXIMAB
     Dosage: 649 MILLIGRAM, CYCLICAL
     Route: 065
     Dates: start: 20210525, end: 20211020
  18. ACYCLOVIR [Concomitant]
     Active Substance: ACYCLOVIR
     Indication: Product used for unknown indication
     Dosage: UNK
     Route: 065
     Dates: start: 20211118, end: 20211213
  19. ERYTHROPOIETIN [Concomitant]
     Active Substance: ERYTHROPOIETIN
     Indication: Product used for unknown indication
     Dosage: UNK
     Route: 065
     Dates: start: 20210726
  20. CHOLECALCIFEROL [Concomitant]
     Active Substance: CHOLECALCIFEROL
     Indication: Product used for unknown indication
     Dosage: UNK
     Route: 065
  21. FUROSEMIDE [Concomitant]
     Active Substance: FUROSEMIDE
     Indication: Product used for unknown indication
     Dosage: UNK
     Route: 065
     Dates: start: 20210126
  22. LANSOPRAZOLE [Concomitant]
     Active Substance: LANSOPRAZOLE
     Indication: Product used for unknown indication
     Dosage: UNK
     Route: 065
     Dates: start: 20210524
  23. PERINDOPRIL [Concomitant]
     Active Substance: PERINDOPRIL
     Indication: Product used for unknown indication
     Dosage: UNK
     Route: 065
     Dates: start: 20210531
  24. VALGANCICLOVIR [Concomitant]
     Active Substance: VALGANCICLOVIR
     Indication: Product used for unknown indication
     Dosage: UNK
     Route: 065
     Dates: start: 20210802

REACTIONS (6)
  - Rash maculo-papular [Recovered/Resolved]
  - Cytomegalovirus infection reactivation [Recovered/Resolved]
  - Erythema [Recovered/Resolved]
  - Pruritus [Recovered/Resolved]
  - COVID-19 [Unknown]
  - Decreased appetite [Unknown]

NARRATIVE: CASE EVENT DATE: 20181112
